FAERS Safety Report 15209761 (Version 3)
Quarter: 2018Q4

REPORT INFORMATION
  Report Type: Report from Study
  Country: ES (occurrence: ES)
  Receive Date: 20180727
  Receipt Date: 20181101
  Transmission Date: 20190204
  Serious: Yes (Hospitalization)
  Sender: FDA-Public Use
  Company Number: ES-PFIZER INC-2018294579

PATIENT
  Age: 55 Year
  Sex: Female
  Weight: 70.7 kg

DRUGS (10)
  1. TEMOZOLOMIDE. [Concomitant]
     Active Substance: TEMOZOLOMIDE
     Dosage: 380 MG, DAILY
     Route: 048
     Dates: start: 20180326, end: 20180625
  2. TEMOZOLOMIDE. [Concomitant]
     Active Substance: TEMOZOLOMIDE
     Dosage: 380 MG, DAILY
     Route: 048
     Dates: start: 20180725, end: 20180730
  3. METOCLOPRAMIDE. [Concomitant]
     Active Substance: METOCLOPRAMIDE
     Indication: NAUSEA
     Dosage: UNK
     Route: 048
     Dates: start: 20180111
  4. TEMOZOLOMIDE. [Concomitant]
     Active Substance: TEMOZOLOMIDE
     Dosage: 280 MG, DAILY
     Route: 048
     Dates: start: 20180226, end: 20180302
  5. CRIZOTINIB [Suspect]
     Active Substance: CRIZOTINIB
     Dosage: 250 MG, DAILY
     Route: 048
     Dates: start: 20180725, end: 20180821
  6. TEMOZOLOMIDE. [Concomitant]
     Active Substance: TEMOZOLOMIDE
     Indication: GLIOBLASTOMA
     Dosage: 140 MG, DAILY
     Route: 048
     Dates: start: 20171220, end: 20180129
  7. ORFIDAL [Concomitant]
     Active Substance: LORAZEPAM
     Indication: INSOMNIA
     Dosage: UNK
     Route: 048
     Dates: start: 20180620
  8. DEXAMETHASONE. [Concomitant]
     Active Substance: DEXAMETHASONE
     Indication: GLIOBLASTOMA
     Dosage: UNK
     Route: 048
     Dates: start: 20180103
  9. CRIZOTINIB [Suspect]
     Active Substance: CRIZOTINIB
     Indication: GLIOBLASTOMA
     Dosage: 250 MG, DAILY
     Route: 048
     Dates: start: 20171220, end: 20180717
  10. LYRICA [Concomitant]
     Active Substance: PREGABALIN
     Indication: VISUAL IMPAIRMENT
     Dosage: UNK
     Route: 048
     Dates: start: 20180125

REACTIONS (1)
  - Cholecystitis acute [Recovered/Resolved]

NARRATIVE: CASE EVENT DATE: 20180708
